FAERS Safety Report 10362897 (Version 1)
Quarter: 2014Q3

REPORT INFORMATION
  Report Type: Spontaneous
  Country: FR (occurrence: None)
  Receive Date: 20140731
  Receipt Date: 20140731
  Transmission Date: 20150326
  Serious: Yes (Hospitalization)
  Sender: FDA-Public Use
  Company Number: AUR-APL-2014-08067

PATIENT
  Age: 47 Year
  Sex: Male

DRUGS (19)
  1. PERINDOPRIL [Suspect]
     Active Substance: PERINDOPRIL
     Indication: HYPERTENSION
     Dosage: 4 MG, UNK, ORAL UNK TO 06/22/2014 THERAPY DATES
     Route: 048
     Dates: end: 20140622
  2. TRANXENE (CLORAZEPATE DIPOTASSIUM) [Concomitant]
  3. CRESTOR [Concomitant]
     Active Substance: ROSUVASTATIN CALCIUM
  4. PREZISTA (DARUNAVIR ETHANOLATE) [Concomitant]
  5. TENOFOVIR [Concomitant]
     Active Substance: TENOFOVIR
  6. THERALENE (ALIMEMAZINE TARTRATE) (4 PERCENT, ORAL SOLUTION) (ALIMEMAZINE TARTRATE) [Concomitant]
     Active Substance: TRIMEPRAZINE
  7. NICOPASS (NICOTINE) [Concomitant]
  8. WELLVONE (ATOVAQUONE) [Concomitant]
     Active Substance: ATOVAQUONE
  9. EMITRICITABINE [Concomitant]
  10. TIORFAN (ACETORPHAN) UNKNOWN [Concomitant]
     Active Substance: RACECADOTRIL
  11. NORVIR (RITONAIR) [Concomitant]
  12. LOXEN (NICARDIPINE HYDROCHLORIDE) [Concomitant]
  13. NICORETTESKIN (NICOTINE) [Concomitant]
  14. LOPERAMIDE (LOPERAMIDE) [Concomitant]
  15. VENLAFAXINE [Concomitant]
     Active Substance: VENLAFAXINE HYDROCHLORIDE
  16. SALBUTAMOL [Concomitant]
     Active Substance: ALBUTEROL
  17. KARDEGIC (ACETYLSALICYLIC LYSINE) [Concomitant]
  18. OROZAMUDAL (TRAMADOL HYDROCHLORIDE) [Concomitant]
  19. TOPALGIC (TRAMADOL HYDROCHLORIDE) [Concomitant]
     Active Substance: TRAMADOL

REACTIONS (3)
  - Cough [None]
  - Vomiting [None]
  - Pyrexia [None]

NARRATIVE: CASE EVENT DATE: 201404
